FAERS Safety Report 15183145 (Version 1)
Quarter: 2018Q4

REPORT INFORMATION
  Report Type: Spontaneous
  Country: US (occurrence: US)
  Receive Date: 20180723
  Receipt Date: 20180723
  Transmission Date: 20190204
  Serious: No
  Sender: FDA-Public Use
  Company Number: US-AYTU BIOSCIENCES, INC.-2018AYT000038

PATIENT

DRUGS (1)
  1. NATESTO [Suspect]
     Active Substance: TESTOSTERONE
     Indication: HYPOGONADISM
     Dosage: 1 (5.5 MG) PUMP IN EACH NOSTRIL TID
     Route: 045
     Dates: start: 20180313

REACTIONS (3)
  - Abdominal discomfort [Unknown]
  - Rhinorrhoea [Unknown]
  - Headache [Unknown]
